FAERS Safety Report 6145023-X (Version None)
Quarter: 2009Q2

REPORT INFORMATION
  Report Type: 
  Country: None (occurrence: None)
  Receive Date: 20090401
  Receipt Date: 20090401
  Transmission Date: 20091009
  Serious: Yes (Other)
  Sender: FDA-Public Use
  Company Number: None

PATIENT
  Age: 76 Year
  Sex: Female
  Weight: 50 kg

DRUGS (14)
  1. VANCOMYCIN HCL [Suspect]
     Indication: PNEUMONIA STAPHYLOCOCCAL
     Dosage: 1 GRAM ONE TIME IV BOLUS
     Route: 040
     Dates: start: 20090113, end: 20090114
  2. VANCOMYCIN HCL [Suspect]
     Dosage: 750 MG Q12H IV BOLUS
     Route: 040
  3. CLOSPORINE [Concomitant]
  4. MYCOPHENOLATE MOFETIL [Concomitant]
  5. FUROSEMIDE [Concomitant]
  6. FLUOXETINE [Concomitant]
  7. LISINOPRIL [Concomitant]
  8. METOCLOPRAMIDE [Concomitant]
  9. METOPROLOL [Concomitant]
  10. MIRTAZAPINE [Concomitant]
  11. OMEPRAZOLE [Concomitant]
  12. TOPIRAMATE [Concomitant]
  13. LEVOFLOXACIN [Concomitant]
  14. ENOXAPARIN SODIUM [Concomitant]

REACTIONS (1)
  - NEPHROPATHY TOXIC [None]
